FAERS Safety Report 5196394-2 (Version None)
Quarter: 2007Q1

REPORT INFORMATION
  Report Type: 
  Country: None (occurrence: None)
  Receive Date: 20070102
  Receipt Date: 20061222
  Transmission Date: 20070707
  Serious: Yes (Other)
  Sender: FDA-Public Use
  Company Number: JP-MERCK-0611USA07349

PATIENT
  Age: 73 Year
  Sex: Male

DRUGS (6)
  1. PEPCID RPD [Suspect]
     Route: 048
     Dates: end: 20061122
  2. GASMOTIN [Concomitant]
     Route: 048
     Dates: end: 20061122
  3. NEUER [Concomitant]
     Route: 065
     Dates: end: 20061128
  4. BERAPROST SODIUM [Concomitant]
     Route: 048
     Dates: end: 20061128
  5. ENSURE [Concomitant]
     Indication: PARENTERAL NUTRITION
     Route: 048
     Dates: start: 20061121
  6. ANPLAG [Suspect]
     Route: 048
     Dates: end: 20061128

REACTIONS (1)
  - LIVER DISORDER [None]
